FAERS Safety Report 6886993-1 (Version None)
Quarter: 2010Q3

REPORT INFORMATION
  Report Type: 
  Country: None (occurrence: None)
  Receive Date: 20100708
  Receipt Date: 20100306
  Transmission Date: 20110219
  Serious: Yes (Other)
  Sender: FDA-Public Use
  Company Number: 2010029919

PATIENT
  Age: 50 Year
  Sex: Female
  Weight: 72.6 kg

DRUGS (10)
  1. CHANTIX [Suspect]
     Indication: SMOKING CESSATION THERAPY
     Dosage: 0.5 MG, 1X/DAY, ORAL; 1 MG, 2X/ DAY ORAL
     Route: 048
     Dates: start: 20100303, end: 20100301
  2. CHANTIX [Suspect]
     Indication: SMOKING CESSATION THERAPY
     Dosage: 0.5 MG, 1X/DAY, ORAL; 1 MG, 2X/ DAY ORAL
     Route: 048
     Dates: start: 20100301
  3. PROPRANOLOL [Concomitant]
  4. OMEPRAZOLE [Concomitant]
  5. GEODON [Concomitant]
  6. NEURONTIN [Concomitant]
  7. MIRTAZAPINE [Concomitant]
  8. ZOLPIDEM [Concomitant]
  9. SEROQUEL [Concomitant]
  10. NAPROXEN [Concomitant]

REACTIONS (4)
  - DEPRESSION [None]
  - FEELING ABNORMAL [None]
  - SCREAMING [None]
  - TOBACCO USER [None]
